FAERS Safety Report 8758441 (Version 1)
Quarter: 2012Q4

REPORT INFORMATION
  Report Type: Spontaneous
  Country: US (occurrence: None)
  Receive Date: 20120828
  Receipt Date: 20120828
  Transmission Date: 20130627
  Serious: Yes (Other)
  Sender: FDA-Public Use
  Company Number: None

PATIENT
  Age: 68 Year
  Sex: Male
  Weight: 90.72 kg

DRUGS (2)
  1. HIZENTRA [Suspect]
     Indication: IMMUNOGLOBULINS DECREASED
     Dates: start: 20111010, end: 20120426
  2. HIZENTRA [Concomitant]

REACTIONS (1)
  - Renal failure acute [None]
